FAERS Safety Report 17856092 (Version 1)
Quarter: 2020Q2

REPORT INFORMATION
  Report Type: Spontaneous
  Country: PL (occurrence: PL)
  Receive Date: 20200603
  Receipt Date: 20200603
  Transmission Date: 20200714
  Serious: Yes (Death)
  Sender: FDA-Public Use
  Company Number: PL-FRESENIUS KABI-FK202005259

PATIENT
  Sex: Male

DRUGS (1)
  1. GLUCOSE 5% [Suspect]
     Active Substance: DEXTROSE
     Indication: PRODUCT USED FOR UNKNOWN INDICATION
     Dosage: 3 DF TOTAL
     Route: 042

REACTIONS (5)
  - Hyperhidrosis [Fatal]
  - Euthanasia [Fatal]
  - Pain in extremity [Fatal]
  - Angina pectoris [Fatal]
  - Cardiac failure [Fatal]
